FAERS Safety Report 6640166-6 (Version None)
Quarter: 2010Q1

REPORT INFORMATION
  Report Type: 
  Country: None (occurrence: None)
  Receive Date: 20100318
  Receipt Date: 20100318
  Transmission Date: 20100710
  Serious: Yes (Other)
  Sender: FDA-Public Use
  Company Number: IT-SANOFI-AVENTIS-2010SA005689

PATIENT
  Age: 51 Year
  Sex: Female

DRUGS (5)
  1. ELOXATIN [Suspect]
     Indication: COLON CANCER STAGE IV
     Route: 041
     Dates: start: 20100129, end: 20100129
  2. ELOXATIN [Suspect]
     Route: 041
     Dates: start: 20090514, end: 20090514
  3. NAVOBAN [Concomitant]
     Indication: PROPHYLAXIS OF NAUSEA AND VOMITING
     Route: 041
     Dates: start: 20100129, end: 20100129
  4. SOLDESAM [Concomitant]
     Indication: PROPHYLAXIS OF NAUSEA AND VOMITING
     Route: 041
     Dates: start: 20100129, end: 20100129
  5. ZANTAC [Concomitant]
     Indication: PROPHYLAXIS
     Route: 041
     Dates: start: 20100129, end: 20100129

REACTIONS (1)
  - LARYNGOSPASM [None]
